FAERS Safety Report 15657644 (Version 1)
Quarter: 2018Q4

REPORT INFORMATION
  Report Type: Report from Study
  Country: DE (occurrence: DE)
  Receive Date: 20181126
  Receipt Date: 20181126
  Transmission Date: 20190205
  Serious: Yes (Hospitalization)
  Sender: FDA-Public Use
  Company Number: DE-SHIRE-DE201845477

PATIENT

DRUGS (5)
  1. NEPHROTRANS [Concomitant]
     Active Substance: SODIUM BICARBONATE
     Indication: PRODUCT USED FOR UNKNOWN INDICATION
  2. TEDUGLUTIDE [Suspect]
     Active Substance: TEDUGLUTIDE
     Dosage: 3 MG, UNK
     Route: 065
     Dates: start: 201807
  3. NUTRIFLEX LIPID [Concomitant]
     Active Substance: AMINO ACIDS\DEXTROSE\ELECTROLYTES NOS\SOYBEAN OIL
     Indication: PARENTERAL NUTRITION
  4. TEDUGLUTIDE [Suspect]
     Active Substance: TEDUGLUTIDE
     Indication: SHORT-BOWEL SYNDROME
     Dosage: 2.65 MG, UNK
     Route: 065
     Dates: start: 20180306, end: 201807
  5. KALIUMCHLORIDE [Concomitant]
     Indication: SHORT-BOWEL SYNDROME

REACTIONS (2)
  - Herpes zoster [Recovered/Resolved]
  - Eye infection [Recovered/Resolved with Sequelae]

NARRATIVE: CASE EVENT DATE: 201807
